FAERS Safety Report 6250601-3 (Version None)
Quarter: 2009Q2

REPORT INFORMATION
  Report Type: 
  Country: None (occurrence: None)
  Receive Date: 20090626
  Receipt Date: 20090609
  Transmission Date: 20091009
  Serious: Yes (Hospitalization)
  Sender: FDA-Public Use
  Company Number: 8048143

PATIENT
  Age: 16 Year
  Sex: Female

DRUGS (3)
  1. KEPPRA [Suspect]
     Indication: EPILEPSY
     Dosage: 600 ML /D PO
     Route: 048
     Dates: start: 20080330, end: 20090313
  2. VALPROIC ACID [Concomitant]
  3. CIPROFLOXACIN HCL [Concomitant]

REACTIONS (4)
  - ANAEMIA [None]
  - HYPOPROTEINAEMIA [None]
  - INTESTINAL HAEMORRHAGE [None]
  - PANCYTOPENIA [None]
